FAERS Safety Report 16327491 (Version 1)
Quarter: 2019Q2

REPORT INFORMATION
  Report Type: Spontaneous
  Country: US (occurrence: US)
  Receive Date: 20190517
  Receipt Date: 20190517
  Transmission Date: 20190711
  Serious: Yes (Death, Other)
  Sender: FDA-Public Use
  Company Number: US-ALLERGAN-1920850US

PATIENT
  Sex: Male

DRUGS (1)
  1. DALBAVANCIN HCL UNK [Suspect]
     Active Substance: DALBAVANCIN HYDROCHLORIDE
     Indication: OSTEOMYELITIS
     Dosage: 1000 MG, SINGLE
     Route: 042

REACTIONS (3)
  - Cardiac failure [Fatal]
  - Off label use [Unknown]
  - Acute kidney injury [Unknown]
